FAERS Safety Report 9365219 (Version 6)
Quarter: 2013Q3

REPORT INFORMATION
  Report Type: Spontaneous
  Country: US (occurrence: US)
  Receive Date: 20130624
  Receipt Date: 20130925
  Transmission Date: 20140515
  Serious: Yes (Disabling, Other)
  Sender: FDA-Public Use
  Company Number: US-009507513-1306USA001742

PATIENT
  Age: 62 Year
  Sex: Male
  Weight: 77.98 kg

DRUGS (16)
  1. VICTRELIS [Suspect]
     Indication: HEPATITIS C
     Dosage: TAKE 4 CAPSULES (800MG) BY MOUTH THREE TIMES A DAY WITH FOOD EVERY 7-9 HOURS START ON WEEK 5
     Route: 048
     Dates: start: 20130515
  2. PEGASYS [Suspect]
  3. RIBAPAK [Suspect]
  4. OMEGA-3 MARINE TRIGLYCERIDES [Concomitant]
     Dosage: 435-880
     Route: 048
  5. HYDROCODONE [Concomitant]
     Dosage: 10-35 MG
     Route: 048
  6. LACTULOSE [Concomitant]
     Dosage: 20 MG/ 30
     Route: 048
  7. LICORICE [Concomitant]
     Route: 048
  8. LIDODERM [Concomitant]
  9. MILK THISTLE [Concomitant]
     Route: 048
  10. OMEPRAZOLE [Concomitant]
     Route: 048
  11. VITAMIN B (UNSPECIFIED) [Concomitant]
     Route: 048
  12. ASCORBIC ACID [Concomitant]
     Route: 048
  13. VITAMIN D (UNSPECIFIED) [Concomitant]
     Route: 048
  14. XIFAXAN [Concomitant]
     Route: 048
  15. ACETAMINOPHEN (+) HYDROCODONE BITARTRATE [Concomitant]
     Route: 048
  16. PROMACTA [Concomitant]

REACTIONS (22)
  - Encephalopathy [Not Recovered/Not Resolved]
  - Tremor [Not Recovered/Not Resolved]
  - Asthenia [Not Recovered/Not Resolved]
  - White blood cell count decreased [Recovered/Resolved]
  - Headache [Not Recovered/Not Resolved]
  - Arthralgia [Not Recovered/Not Resolved]
  - Cellulitis [Not Recovered/Not Resolved]
  - Dyspnoea [Not Recovered/Not Resolved]
  - Decreased appetite [Not Recovered/Not Resolved]
  - Insomnia [Not Recovered/Not Resolved]
  - Dizziness [Not Recovered/Not Resolved]
  - Chills [Not Recovered/Not Resolved]
  - Palpitations [Unknown]
  - Red blood cell count decreased [Unknown]
  - Nausea [Unknown]
  - Headache [Unknown]
  - Arthralgia [Unknown]
  - Pruritus [Unknown]
  - Dyspnoea [Not Recovered/Not Resolved]
  - Nausea [Unknown]
  - Memory impairment [Unknown]
  - Rash [Not Recovered/Not Resolved]
